FAERS Safety Report 9625994 (Version 1)
Quarter: 2013Q4

REPORT INFORMATION
  Report Type: Spontaneous
  Country: US (occurrence: None)
  Receive Date: 20131015
  Receipt Date: 20131015
  Transmission Date: 20140711
  Serious: No
  Sender: FDA-Public Use
  Company Number: None

PATIENT
  Age: 33 Year
  Sex: Female
  Weight: 82.56 kg

DRUGS (1)
  1. NITROFURANTOIN 100 MG [Suspect]
     Indication: URINARY TRACT INFECTION
     Route: 048
     Dates: start: 20131006, end: 20131008

REACTIONS (4)
  - Nausea [None]
  - Vomiting [None]
  - Pruritus [None]
  - Pruritus [None]
